FAERS Safety Report 10245609 (Version 1)
Quarter: 2014Q2

REPORT INFORMATION
  Report Type: Spontaneous
  Country: FR (occurrence: FR)
  Receive Date: 20140619
  Receipt Date: 20140619
  Transmission Date: 20141212
  Serious: Yes (Hospitalization)
  Sender: FDA-Public Use
  Company Number: FR-ROCHE-1419471

PATIENT
  Age: 67 Year
  Sex: Female

DRUGS (6)
  1. ZELBORAF [Suspect]
     Indication: MALIGNANT MELANOMA
     Route: 048
     Dates: start: 20140502, end: 20140513
  2. KEPPRA [Suspect]
     Indication: BRAIN OEDEMA
     Route: 048
     Dates: start: 20140502, end: 20140516
  3. CORTANCYL [Concomitant]
  4. INEXIUM [Concomitant]
  5. ATARAX [Concomitant]
  6. NERISONE [Concomitant]

REACTIONS (1)
  - Acute generalised exanthematous pustulosis [Recovered/Resolved]
